FAERS Safety Report 21674797 (Version 1)
Quarter: 2022Q4

REPORT INFORMATION
  Report Type: Spontaneous
  Country: US (occurrence: None)
  Receive Date: 20221201
  Receipt Date: 20221201
  Transmission Date: 20230113
  Serious: Yes (Other)
  Sender: FDA-Public Use
  Company Number: None

PATIENT
  Age: 44 Year
  Sex: Female
  Weight: 76.05 kg

DRUGS (7)
  1. HEATHER [Suspect]
     Active Substance: NORETHINDRONE
     Indication: Ovarian cyst
     Dosage: OTHER QUANTITY : 28 TABLET(S);?FREQUENCY : AT BEDTIME;?
     Route: 048
     Dates: start: 20220901, end: 20221109
  2. HEATHER [Suspect]
     Active Substance: NORETHINDRONE
     Indication: Menstruation irregular
  3. FAMVIR [Concomitant]
     Active Substance: FAMCICLOVIR
  4. ventolonin [Concomitant]
  5. VITAMIN D [Concomitant]
     Active Substance: VITAMIN D NOS
  6. VITAMIN A [Concomitant]
     Active Substance: VITAMIN A
  7. MAGNESIUM [Concomitant]
     Active Substance: MAGNESIUM

REACTIONS (7)
  - Hypoaesthesia [None]
  - Feeling hot [None]
  - Vision blurred [None]
  - Visual impairment [None]
  - Dry eye [None]
  - Erythema [None]
  - Erythema [None]

NARRATIVE: CASE EVENT DATE: 20221111
